FAERS Safety Report 15775948 (Version 2)
Quarter: 2019Q1

REPORT INFORMATION
  Report Type: Report from Study
  Country: DE (occurrence: DE)
  Receive Date: 20181231
  Receipt Date: 20190125
  Transmission Date: 20190417
  Serious: Yes (Other)
  Sender: FDA-Public Use
  Company Number: DE-BRISTOL-MYERS SQUIBB COMPANY-BMS-2018-042578

PATIENT
  Age: 69 Year
  Sex: Female

DRUGS (2)
  1. IPILIMUMAB [Suspect]
     Active Substance: IPILIMUMAB
     Indication: MALIGNANT MELANOMA
     Dosage: 200 MG, Q3WK
     Route: 065
     Dates: start: 20180215, end: 20180417
  2. NIVOLUMAB [Suspect]
     Active Substance: NIVOLUMAB
     Indication: MALIGNANT MELANOMA
     Dosage: 70 MG, Q3WK
     Route: 042
     Dates: start: 20180215, end: 20180417

REACTIONS (4)
  - Autoimmune uveitis [Recovering/Resolving]
  - Iris adhesions [Recovering/Resolving]
  - Macular oedema [Recovering/Resolving]
  - Uveal melanoma [Recovering/Resolving]

NARRATIVE: CASE EVENT DATE: 20180507
